FAERS Safety Report 10996546 (Version 1)
Quarter: 2015Q1

REPORT INFORMATION
  Report Type: Spontaneous
  Country: US (occurrence: None)
  Receive Date: 20150331
  Receipt Date: 20150331
  Transmission Date: 20150721
  Serious: Yes (Other)
  Sender: FDA-Public Use
  Company Number: PHEH2014US015787

PATIENT
  Age: 81 Year
  Sex: Female
  Weight: 60.3 kg

DRUGS (10)
  1. EXELON PATCH [Suspect]
     Active Substance: RIVASTIGMINE
     Indication: DEMENTIA ALZHEIMER^S TYPE
     Route: 062
     Dates: start: 20140715, end: 20140807
  2. CELEXA [Concomitant]
     Active Substance: CITALOPRAM HYDROBROMIDE
  3. PRAVACHOL (PRAVASTATIN SODIUM) [Concomitant]
  4. XANAX [Concomitant]
     Active Substance: ALPRAZOLAM
  5. COLACE [Concomitant]
     Active Substance: DOCUSATE SODIUM
  6. COENZYME Q10 (UBIDECARENONE) [Concomitant]
  7. NORVASC [Concomitant]
     Active Substance: AMLODIPINE BESYLATE
  8. TOPROL (METOPROLOL SUCCINATE) [Concomitant]
  9. TYLENOL [Concomitant]
     Active Substance: ACETAMINOPHEN
  10. TRAZODONE [Concomitant]
     Active Substance: TRAZODONE HYDROCHLORIDE

REACTIONS (1)
  - Fall [None]

NARRATIVE: CASE EVENT DATE: 20140924
